FAERS Safety Report 5040976-5 (Version None)
Quarter: 2006Q2

REPORT INFORMATION
  Report Type: 
  Country: None (occurrence: None)
  Receive Date: 20060629
  Receipt Date: 20060629
  Transmission Date: 20061013
  Serious: Yes (Hospitalization)
  Sender: FDA-Public Use
  Company Number: None

PATIENT
  Age: 52 Year
  Sex: Male
  Weight: 75.7507 kg

DRUGS (1)
  1. LOXITANE [Suspect]
     Indication: SCHIZOPHRENIA, PARANOID TYPE
     Dosage: 50 MG TID PO
     Route: 048
     Dates: start: 20060529, end: 20060602

REACTIONS (1)
  - NEUROLEPTIC MALIGNANT SYNDROME [None]
